FAERS Safety Report 5862533-0 (Version None)
Quarter: 2008Q3

REPORT INFORMATION
  Report Type: 
  Country: None (occurrence: None)
  Receive Date: 20080828
  Receipt Date: 20080818
  Transmission Date: 20090109
  Serious: Yes (Other)
  Sender: FDA-Public Use
  Company Number: US-BAYER-200826533NA

PATIENT
  Age: 52 Year
  Sex: Male

DRUGS (3)
  1. AVELOX [Suspect]
     Indication: UPPER RESPIRATORY TRACT INFECTION
     Dosage: TOTAL DAILY DOSE: 400 MG  UNIT DOSE: 400 MG
     Route: 048
     Dates: start: 20070508
  2. SOLU-MEDROL [Concomitant]
     Indication: SINUSITIS
  3. ANCEF [Concomitant]

REACTIONS (7)
  - ANAPHYLACTIC REACTION [None]
  - CHOKING SENSATION [None]
  - DYSPNOEA [None]
  - ERYTHEMA [None]
  - NAUSEA [None]
  - PYREXIA [None]
  - VOMITING [None]
